FAERS Safety Report 6460723-X (Version None)
Quarter: 2009Q4

REPORT INFORMATION
  Report Type: 
  Country: None (occurrence: None)
  Receive Date: 20091125
  Receipt Date: 20091125
  Transmission Date: 20100525
  Serious: Yes (Hospitalization)
  Sender: FDA-Public Use
  Company Number: None

PATIENT
  Sex: Male
  Weight: 69.3 kg

DRUGS (5)
  1. PEMETREXED [Suspect]
     Indication: NON-SMALL CELL LUNG CANCER
     Dosage: 400MG/M2 IV Q2 WEEKS
     Route: 042
     Dates: start: 20090915, end: 20091020
  2. GEMCITABINE [Suspect]
     Indication: NON-SMALL CELL LUNG CANCER
     Dosage: 1200MG/M2 Q2 WEEKS
     Dates: start: 20090915, end: 20091020
  3. AVASTIN [Suspect]
     Indication: NON-SMALL CELL LUNG CANCER
     Dosage: 10MG/KG Q2 WEEKS
     Dates: start: 20090915, end: 20091020
  4. PREDNISONE [Concomitant]
  5. NORCO [Concomitant]

REACTIONS (2)
  - DYSPNOEA [None]
  - MALIGNANT NEOPLASM PROGRESSION [None]
